FAERS Safety Report 9371491 (Version 2)
Quarter: 2013Q3

REPORT INFORMATION
  Report Type: Spontaneous
  Country: SE (occurrence: SE)
  Receive Date: 20130627
  Receipt Date: 20130801
  Transmission Date: 20140515
  Serious: Yes (Hospitalization)
  Sender: FDA-Public Use
  Company Number: SE-JNJFOC-20130612773

PATIENT
  Age: 75 Year
  Sex: Female

DRUGS (2)
  1. SIMPONI [Suspect]
     Indication: RHEUMATOID ARTHRITIS
     Route: 058
     Dates: start: 20100909, end: 20130203
  2. METHOTREXATE [Concomitant]
     Route: 065
     Dates: start: 20060904

REACTIONS (1)
  - Erysipelas [Recovered/Resolved]
